FAERS Safety Report 20021798 (Version 1)
Quarter: 2021Q4

REPORT INFORMATION
  Report Type: Spontaneous
  Country: US (occurrence: US)
  Receive Date: 20211101
  Receipt Date: 20211101
  Transmission Date: 20220303
  Serious: No
  Sender: FDA-Public Use
  Company Number: US-ORGANON-O2110USA002296

PATIENT
  Age: 14 Year
  Sex: Female

DRUGS (1)
  1. NEXPLANON [Suspect]
     Active Substance: ETONOGESTREL
     Indication: Contraception
     Dosage: 1 IMPLANT (68MG EVERY 3 YEARS)
     Route: 059
     Dates: start: 20211014, end: 20211018

REACTIONS (1)
  - Implant site infection [Unknown]

NARRATIVE: CASE EVENT DATE: 20211018
